FAERS Safety Report 21416336 (Version 1)
Quarter: 2022Q4

REPORT INFORMATION
  Report Type: Spontaneous
  Country: US (occurrence: US)
  Receive Date: 20221006
  Receipt Date: 20221006
  Transmission Date: 20230112
  Serious: No
  Sender: FDA-Public Use
  Company Number: US-ALLERGAN-2213938US

PATIENT
  Age: 50 Year
  Sex: Female

DRUGS (2)
  1. VRAYLAR [Suspect]
     Active Substance: CARIPRAZINE
     Indication: Bipolar I disorder
     Dosage: 6 MG
     Dates: start: 202106
  2. VRAYLAR [Suspect]
     Active Substance: CARIPRAZINE
     Indication: Post-traumatic stress disorder

REACTIONS (3)
  - Weight decreased [Unknown]
  - Vomiting [Unknown]
  - Off label use [Unknown]
